FAERS Safety Report 12721720 (Version 1)
Quarter: 2016Q3

REPORT INFORMATION
  Report Type: Report from Study
  Country: BR (occurrence: BR)
  Receive Date: 20160907
  Receipt Date: 20160907
  Transmission Date: 20161109
  Serious: Yes (Hospitalization)
  Sender: FDA-Public Use
  Company Number: BR-BIOGEN-2016BI00286665

PATIENT
  Age: 37 Year
  Sex: Male

DRUGS (1)
  1. AVONEX [Suspect]
     Active Substance: INTERFERON BETA-1A
     Indication: MULTIPLE SCLEROSIS
     Dosage: EVERY WEDNESDAY
     Route: 065
     Dates: start: 20070919, end: 201606

REACTIONS (3)
  - Stress [Unknown]
  - Memory impairment [Unknown]
  - General symptom [Recovered/Resolved]

NARRATIVE: CASE EVENT DATE: 201606
